FAERS Safety Report 4431442-6 (Version None)
Quarter: 2004Q3

REPORT INFORMATION
  Report Type: 
  Country: None (occurrence: None)
  Receive Date: 20040824
  Receipt Date: 20030624
  Transmission Date: 20050211
  Serious: Yes (Hospitalization)
  Sender: FDA-Public Use
  Company Number: DE-GLAXOSMITHKLINE-D0041268A

PATIENT
  Age: 61 Year
  Sex: Male
  Weight: 95 kg

DRUGS (1)
  1. MALARONE [Suspect]
     Indication: MALARIA PROPHYLAXIS
     Route: 048
     Dates: start: 20021001, end: 20030625

REACTIONS (8)
  - ABDOMINAL PAIN UPPER [None]
  - AMOEBIC DYSENTERY [None]
  - BRONCHOPNEUMONIA [None]
  - DRUG INEFFECTIVE [None]
  - HEADACHE [None]
  - MALARIA [None]
  - PYREXIA [None]
  - TYPHUS [None]
